FAERS Safety Report 25708395 (Version 2)
Quarter: 2025Q3

REPORT INFORMATION
  Report Type: Spontaneous
  Country: EU (occurrence: EU)
  Receive Date: 20250821
  Receipt Date: 20250826
  Transmission Date: 20251021
  Serious: Yes (Hospitalization, Other)
  Sender: AUROBINDO
  Company Number: EU-ACTAVIS-2015-14753

PATIENT
  Age: 64 Year
  Sex: Male

DRUGS (29)
  1. OXALIPLATIN [Suspect]
     Active Substance: OXALIPLATIN
     Indication: Metastatic gastric cancer
     Route: 065
  2. OXALIPLATIN [Suspect]
     Active Substance: OXALIPLATIN
     Indication: Skin test
     Route: 065
  3. OXALIPLATIN [Suspect]
     Active Substance: OXALIPLATIN
     Indication: Skin test
     Route: 050
  4. OXALIPLATIN [Suspect]
     Active Substance: OXALIPLATIN
     Indication: Skin test
     Route: 023
  5. DOCETAXEL [Suspect]
     Active Substance: DOCETAXEL
     Indication: Skin test
     Route: 050
  6. DOCETAXEL [Suspect]
     Active Substance: DOCETAXEL
     Indication: Skin test
     Route: 023
  7. CARBOPLATIN [Suspect]
     Active Substance: CARBOPLATIN
     Indication: Gastric cancer
     Route: 065
  8. CARBOPLATIN [Suspect]
     Active Substance: CARBOPLATIN
     Indication: Skin test
     Route: 050
  9. CARBOPLATIN [Suspect]
     Active Substance: CARBOPLATIN
     Indication: Skin test
     Route: 023
  10. CARBOPLATIN [Suspect]
     Active Substance: CARBOPLATIN
     Indication: Skin test
     Route: 065
  11. CISPLATIN [Suspect]
     Active Substance: CISPLATIN
     Indication: Gastric cancer
     Route: 065
  12. CISPLATIN [Suspect]
     Active Substance: CISPLATIN
     Indication: Skin test
     Route: 050
  13. CISPLATIN [Suspect]
     Active Substance: CISPLATIN
     Indication: Skin test
     Route: 023
  14. TAXOTERE [Suspect]
     Active Substance: DOCETAXEL
     Indication: Metastatic gastric cancer
     Route: 065
  15. 5-FLUOROURACIL                     /00098801/ [Concomitant]
     Indication: Metastatic gastric cancer
     Route: 065
  16. 5-FLUOROURACIL                     /00098801/ [Concomitant]
     Indication: Skin test
     Route: 050
  17. 5-FLUOROURACIL                     /00098801/ [Concomitant]
     Indication: Skin test
     Route: 023
  18. 5-FLUOROURACIL                     /00098801/ [Concomitant]
     Indication: Skin test
  19. LEUCOVORIN CALCIUM [Concomitant]
     Active Substance: LEUCOVORIN CALCIUM
     Indication: Metastatic gastric cancer
     Route: 065
  20. LEUCOVORIN CALCIUM [Concomitant]
     Active Substance: LEUCOVORIN CALCIUM
     Indication: Skin test
     Route: 050
  21. LEUCOVORIN CALCIUM [Concomitant]
     Active Substance: LEUCOVORIN CALCIUM
     Indication: Skin test
     Route: 023
  22. ONDANSETRON [Concomitant]
     Active Substance: ONDANSETRON
     Indication: Adjuvant therapy
     Route: 065
  23. ONDANSETRON [Concomitant]
     Active Substance: ONDANSETRON
     Indication: Skin test
     Route: 050
  24. ONDANSETRON [Concomitant]
     Active Substance: ONDANSETRON
     Indication: Skin test
     Route: 023
  25. ONDANSETRON [Concomitant]
     Active Substance: ONDANSETRON
     Indication: Skin test
  26. METHYLPREDNISOLONE SODIUM SUCCINATE [Concomitant]
     Active Substance: METHYLPREDNISOLONE SODIUM SUCCINATE
     Indication: Adjuvant therapy
     Route: 065
  27. METHYLPREDNISOLONE SODIUM SUCCINATE [Concomitant]
     Active Substance: METHYLPREDNISOLONE SODIUM SUCCINATE
     Indication: Skin test
     Route: 050
  28. METHYLPREDNISOLONE SODIUM SUCCINATE [Concomitant]
     Active Substance: METHYLPREDNISOLONE SODIUM SUCCINATE
     Indication: Skin test
     Route: 023
  29. METHYLPREDNISOLONE SODIUM SUCCINATE [Concomitant]
     Active Substance: METHYLPREDNISOLONE SODIUM SUCCINATE
     Indication: Skin test

REACTIONS (7)
  - Type IV hypersensitivity reaction [Recovered/Resolved with Sequelae]
  - Rash maculo-papular [Recovered/Resolved with Sequelae]
  - Off label use [Unknown]
  - Rash [Unknown]
  - Pruritus [Recovered/Resolved with Sequelae]
  - Skin reaction [Unknown]
  - Skin test positive [Unknown]
